FAERS Safety Report 5315245-6 (Version None)
Quarter: 2007Q2

REPORT INFORMATION
  Report Type: 
  Country: None (occurrence: None)
  Receive Date: 20070427
  Receipt Date: 20070424
  Transmission Date: 20071010
  Serious: Yes (Other)
  Sender: FDA-Public Use
  Company Number: 0704-301

PATIENT
  Age: 11 Year
  Sex: Female

DRUGS (5)
  1. ALBUTEROL SULATE [Suspect]
  2. IPRATROPIUM BROMIDE [Concomitant]
  3. METHYLPREDNISOLONE 16MG TAB [Concomitant]
  4. AMINOPHYLINE [Concomitant]
  5. MAGNESIUM SULFATE [Concomitant]

REACTIONS (1)
  - LACTIC ACIDOSIS [None]
